FAERS Safety Report 21950894 (Version 2)
Quarter: 2023Q1

REPORT INFORMATION
  Report Type: Spontaneous
  Country: US (occurrence: US)
  Receive Date: 20230203
  Receipt Date: 20230207
  Transmission Date: 20230418
  Serious: No
  Sender: FDA-Public Use
  Company Number: US-PFIZER INC-202300049746

PATIENT
  Age: 70 Year
  Sex: Male
  Weight: 88.45 kg

DRUGS (12)
  1. PAXLOVID [Suspect]
     Active Substance: NIRMATRELVIR\RITONAVIR
     Indication: COVID-19 immunisation
     Dosage: 3 DF, 2X/DAY
     Dates: start: 20230131
  2. PRAVASTATIN [Suspect]
     Active Substance: PRAVASTATIN
     Indication: Blood cholesterol abnormal
     Dosage: 80 MG, 1X/DAY (ONCE DAILY IN THE MORNING)
  3. BREO ELLIPTA [Concomitant]
     Active Substance: FLUTICASONE FUROATE\VILANTEROL TRIFENATATE
     Indication: Asthma
     Dosage: UNK, 1X/DAY (1 INHALATION ONCE DAILY)
  4. COLESTIPOL [Concomitant]
     Active Substance: COLESTIPOL
     Dosage: 1 G, AS NEEDED
  5. CREON [Concomitant]
     Active Substance: PANCRELIPASE AMYLASE\PANCRELIPASE LIPASE\PANCRELIPASE PROTEASE
     Indication: Pancreatic failure
     Dosage: UNK, CYCLIC (2 CAPSULES PER MEAL, AND 1 CAPSULE PER SNACK)
  6. CYTOMEL [Concomitant]
     Active Substance: LIOTHYRONINE SODIUM
     Indication: Thyroid disorder
     Dosage: 5 MG, 1X/DAY (ONCE DAILY IN THE MORNING)
  7. GABAPENTIN [Concomitant]
     Active Substance: GABAPENTIN
     Indication: Sleep disorder
     Dosage: 300 MG, 1X/DAY (ONCE AT NIGHT)
  8. LEXAPRO [Concomitant]
     Active Substance: ESCITALOPRAM OXALATE
     Indication: Personality change
     Dosage: 20 MG, 1X/DAY (ONCE DAILY IN THE MORNING)
  9. LEXAPRO [Concomitant]
     Active Substance: ESCITALOPRAM OXALATE
     Indication: Anxiety
  10. MONTELUKAST SODIUM [Concomitant]
     Active Substance: MONTELUKAST SODIUM
     Indication: Asthma
     Dosage: 10 MG, 1X/DAY (ONCE DAILY IN THE MORNING)
  11. CARISOPRODOL [Concomitant]
     Active Substance: CARISOPRODOL
     Indication: Insomnia
     Dosage: 10 G, AS NEEDED
  12. SYNTHROID [Concomitant]
     Active Substance: LEVOTHYROXINE SODIUM
     Indication: Thyroid disorder
     Dosage: 75 MG, 1X/DAY (ONCE IN THE MORNING)

REACTIONS (4)
  - Muscle spasms [Not Recovered/Not Resolved]
  - Condition aggravated [Not Recovered/Not Resolved]
  - Taste disorder [Not Recovered/Not Resolved]
  - Musculoskeletal stiffness [Unknown]

NARRATIVE: CASE EVENT DATE: 20230131
